FAERS Safety Report 4596762-3 (Version None)
Quarter: 2005Q1

REPORT INFORMATION
  Report Type: 
  Country: None (occurrence: None)
  Receive Date: 20050228
  Receipt Date: 20050211
  Transmission Date: 20050727
  Serious: Yes (Other)
  Sender: FDA-Public Use
  Company Number: DSA_81207_2005

PATIENT
  Age: 48 Year
  Sex: Male
  Weight: 94.3482 kg

DRUGS (9)
  1. XYREM [Suspect]
     Indication: SLEEP APNOEA SYNDROME
     Dosage: 4.5 G NIGHTLY PO
     Route: 048
     Dates: start: 20041101
  2. XYREM [Suspect]
     Indication: SLEEP APNOEA SYNDROME
     Dosage: 7.5 G NIGHTLY PO
     Route: 048
     Dates: end: 20050101
  3. XYREM [Suspect]
     Indication: SLEEP APNOEA SYNDROME
     Dosage: 8 G NIGHTLY PO
     Route: 048
     Dates: start: 20050101
  4. XYREM [Suspect]
     Indication: SLEEP APNOEA SYNDROME
     Dosage: 9 G NIGHTLY PO
     Route: 048
     Dates: start: 20050101, end: 20050123
  5. XYREM [Suspect]
     Indication: SLEEP APNOEA SYNDROME
     Dosage: 7.5 G NIGHTLY PO
     Route: 048
     Dates: start: 20050124, end: 20050207
  6. XYREM [Suspect]
     Indication: SLEEP APNOEA SYNDROME
     Dosage: 8 G NIGHTLY PO
     Route: 048
     Dates: start: 20050206, end: 20050207
  7. XYREM [Suspect]
     Indication: SLEEP APNOEA SYNDROME
     Dosage: 7.5 G NIGHTLY PO
     Route: 048
     Dates: start: 20050208
  8. PREVACID [Concomitant]
  9. ADDERALL 10 [Concomitant]

REACTIONS (6)
  - BLOOD CATECHOLAMINES INCREASED [None]
  - BLOOD PRESSURE SYSTOLIC INCREASED [None]
  - COMPUTERISED TOMOGRAM ABNORMAL [None]
  - HEART RATE INCREASED [None]
  - INSOMNIA [None]
  - SPLENOMEGALY [None]
